FAERS Safety Report 11470949 (Version 2)
Quarter: 2015Q3

REPORT INFORMATION
  Report Type: Spontaneous
  Country: US (occurrence: US)
  Receive Date: 20150903
  Receipt Date: 20150903
  Transmission Date: 20151125
  Serious: Yes (Hospitalization)
  Sender: FDA-Public Use
  Company Number: US-ELI_LILLY_AND_COMPANY-US201201003632

PATIENT
  Age: 71 Year
  Sex: Male
  Weight: 117 kg

DRUGS (12)
  1. LYRICA [Concomitant]
     Active Substance: PREGABALIN
     Indication: NEURALGIA
     Dosage: 75 MG, QD
     Route: 048
     Dates: start: 2009
  2. LYRICA [Concomitant]
     Active Substance: PREGABALIN
     Dosage: 225 MG, QD
     Dates: start: 201112
  3. LISINOPRIL. [Concomitant]
     Active Substance: LISINOPRIL
     Dosage: 20 MG, UNK
  4. LYRICA [Concomitant]
     Active Substance: PREGABALIN
     Dosage: 150 MG, QD
     Dates: start: 2011
  5. FUROSEMIDE. [Concomitant]
     Active Substance: FUROSEMIDE
     Dosage: 30 MG, UNK
  6. AMITRIPTYLINE [Concomitant]
     Active Substance: AMITRIPTYLINE
     Indication: NEURALGIA
     Dosage: 25 MG, QD
     Route: 048
     Dates: start: 201110
  7. LYRICA [Concomitant]
     Active Substance: PREGABALIN
     Dosage: 450 MG, UNK
  8. POTASSIUM [Concomitant]
     Active Substance: POTASSIUM
     Dosage: 10 MG, UNK
  9. FLECAINIDE [Concomitant]
     Active Substance: FLECAINIDE
     Dosage: 100 MG, UNK
  10. METOPROLOL [Concomitant]
     Active Substance: METOPROLOL
     Dosage: 100 MG, UNK
  11. WARFARIN [Concomitant]
     Active Substance: WARFARIN
     Dosage: 7.5 MG, UNK
  12. CYMBALTA [Suspect]
     Active Substance: DULOXETINE HYDROCHLORIDE
     Indication: NEURALGIA
     Dosage: 60 MG, QD
     Route: 048
     Dates: start: 201110

REACTIONS (11)
  - Nausea [Not Recovered/Not Resolved]
  - Fatigue [Not Recovered/Not Resolved]
  - Palpitations [Not Recovered/Not Resolved]
  - Asthenia [Not Recovered/Not Resolved]
  - Pain [Not Recovered/Not Resolved]
  - Heart rate increased [Not Recovered/Not Resolved]
  - Off label use [Not Recovered/Not Resolved]
  - Discomfort [Not Recovered/Not Resolved]
  - Atrial fibrillation [Not Recovered/Not Resolved]
  - Peripheral swelling [Not Recovered/Not Resolved]
  - Hypersomnia [Not Recovered/Not Resolved]

NARRATIVE: CASE EVENT DATE: 2011
